FAERS Safety Report 7513318-0 (Version None)
Quarter: 2011Q2

REPORT INFORMATION
  Report Type: 
  Country: None (occurrence: None)
  Receive Date: 20110531
  Receipt Date: 20110526
  Transmission Date: 20111010
  Serious: Yes (Hospitalization)
  Sender: FDA-Public Use
  Company Number: US-ABBOTT-11P-163-0728149-00

PATIENT
  Age: 21 Year
  Sex: Female

DRUGS (8)
  1. SYNTHROID [Concomitant]
     Indication: THYROID CANCER
  2. ASACOL [Concomitant]
     Indication: CROHN'S DISEASE
  3. CELEXA [Concomitant]
     Indication: ANXIETY
     Dosage: 40 MG DAILY
  4. SYNTHROID [Concomitant]
     Indication: HYPOTHYROIDISM
     Dosage: 112 MCG DAILY
     Dates: start: 20110101
  5. HUMIRA [Suspect]
     Indication: CROHN'S DISEASE
     Dates: start: 20110415, end: 20110509
  6. LOESTRIN 1.5/30 [Concomitant]
     Indication: CONTRACEPTION
     Dosage: 24
  7. BUSPAR [Concomitant]
     Indication: ANXIETY
  8. METHOTREXATE [Concomitant]
     Indication: CROHN'S DISEASE
     Route: 050

REACTIONS (3)
  - BRAIN NEOPLASM [None]
  - LOCALISED INFECTION [None]
  - HEADACHE [None]
